FAERS Safety Report 6104102-3 (Version None)
Quarter: 2009Q1

REPORT INFORMATION
  Report Type: 
  Country: None (occurrence: None)
  Receive Date: 20090305
  Receipt Date: 20090224
  Transmission Date: 20090719
  Serious: Yes (Hospitalization, Other)
  Sender: FDA-Public Use
  Company Number: PHHY2009GB06997

PATIENT

DRUGS (5)
  1. CARBAMAZEPINE [Suspect]
     Indication: EPILEPSY
     Dosage: 1200 MG, UNK
     Route: 048
  2. PRIMIDONE [Concomitant]
     Indication: EPILEPSY
     Dosage: 250 MG, TID
     Route: 048
  3. SYMBICORT [Concomitant]
     Indication: CHRONIC OBSTRUCTIVE PULMONARY DISEASE
     Dosage: UNK
     Dates: start: 20080418
  4. TERBUTALINE SULFATE [Concomitant]
     Indication: CHRONIC OBSTRUCTIVE PULMONARY DISEASE
     Dosage: 4 TIMES DAILY
     Dates: start: 20080418
  5. TIOTROPIUM BROMIDE [Concomitant]
     Indication: CHRONIC OBSTRUCTIVE PULMONARY DISEASE
     Dosage: 18 UG, BID
     Dates: start: 20080418

REACTIONS (14)
  - ANAEMIA [None]
  - APPETITE DISORDER [None]
  - BLOOD FOLATE DECREASED [None]
  - CHRONIC OBSTRUCTIVE PULMONARY DISEASE [None]
  - CONFUSIONAL STATE [None]
  - DIARRHOEA [None]
  - DYSPNOEA [None]
  - HAEMATOCRIT DECREASED [None]
  - HAEMOGLOBIN DECREASED [None]
  - LETHARGY [None]
  - MEAN CELL VOLUME INCREASED [None]
  - MENTAL DISORDER [None]
  - RED BLOOD CELL COUNT DECREASED [None]
  - VITAMIN B12 DECREASED [None]
